FAERS Safety Report 6844886-X (Version None)
Quarter: 2010Q3

REPORT INFORMATION
  Report Type: 
  Country: None (occurrence: None)
  Receive Date: 20100715
  Receipt Date: 20100602
  Transmission Date: 20110219
  Serious: Yes (Hospitalization)
  Sender: FDA-Public Use
  Company Number: DE-MYLANLABS-2009S1004363

PATIENT
  Age: 65 Year
  Sex: Female
  Weight: 50 kg

DRUGS (9)
  1. RAMIPRIL [Suspect]
     Indication: HYPERTENSION
  2. HYDROCHLOROTHIAZIDE [Suspect]
     Indication: HYPERTENSION
     Route: 048
     Dates: end: 20080523
  3. ACTONEL [Concomitant]
     Indication: HIP FRACTURE
     Route: 048
  4. CLEXANE [Concomitant]
     Indication: HIP FRACTURE
     Route: 058
     Dates: start: 20080428
  5. FENTANYL [Concomitant]
     Indication: MULTIPLE SCLEROSIS
     Route: 062
  6. IMUREK /00001501/ [Concomitant]
     Indication: MULTIPLE SCLEROSIS
     Route: 048
  7. METAMIZOLE [Concomitant]
     Indication: MULTIPLE SCLEROSIS
     Route: 048
  8. NULYTELY [Concomitant]
     Indication: CONSTIPATION
     Route: 048
  9. SIRDALUD [Concomitant]
     Indication: MULTIPLE SCLEROSIS
     Route: 048

REACTIONS (2)
  - HYPOTENSION [None]
  - SYNCOPE [None]
